FAERS Safety Report 16255706 (Version 1)
Quarter: 2019Q2

REPORT INFORMATION
  Report Type: Spontaneous
  Country: GB (occurrence: GB)
  Receive Date: 20190430
  Receipt Date: 20190430
  Transmission Date: 20190711
  Serious: Yes (Other)
  Sender: FDA-Public Use
  Company Number: GB-ABBVIE-19S-167-2762669-00

PATIENT
  Sex: Female

DRUGS (4)
  1. KIVEXA [Suspect]
     Active Substance: ABACAVIR SULFATE\LAMIVUDINE
     Indication: PRODUCT USED FOR UNKNOWN INDICATION
     Route: 065
  2. FOLIC ACID. [Concomitant]
     Active Substance: FOLIC ACID
     Indication: FOLATE DEFICIENCY
     Dosage: 5 MILLIGRAM, QD
     Route: 065
  3. REYATAZ [Suspect]
     Active Substance: ATAZANAVIR SULFATE
     Indication: PRODUCT USED FOR UNKNOWN INDICATION
     Dosage: 100 MILLIGRAM, QD
     Route: 065
  4. RITONAVIR. [Suspect]
     Active Substance: RITONAVIR
     Indication: PRODUCT USED FOR UNKNOWN INDICATION
     Dosage: 100 MILLIGRAM, QD
     Route: 065

REACTIONS (1)
  - Retinal aneurysm [Unknown]
